FAERS Safety Report 7173709-7 (Version None)
Quarter: 2010Q4

REPORT INFORMATION
  Report Type: 
  Country: None (occurrence: None)
  Receive Date: 20101215
  Receipt Date: 20101215
  Transmission Date: 20110411
  Serious: No
  Sender: FDA-Public Use
  Company Number: None

PATIENT
  Age: 76 Year
  Sex: Male
  Weight: 83.0083 kg

DRUGS (1)
  1. CYMBALTA [Suspect]
     Dosage: ONE CAPSULE ONCE A DAY (STARTED MID SEPT ON 30; STARTED 60 MG - OCT)

REACTIONS (2)
  - DIARRHOEA [None]
  - DRUG INEFFECTIVE [None]
